FAERS Safety Report 19168330 (Version 2)
Quarter: 2021Q2

REPORT INFORMATION
  Report Type: Report from Study
  Country: NL (occurrence: NL)
  Receive Date: 20210422
  Receipt Date: 20210628
  Transmission Date: 20210717
  Serious: Yes (Death)
  Sender: FDA-Public Use
  Company Number: NL-BEH-2021130728

PATIENT
  Age: 74 Year
  Sex: Male

DRUGS (5)
  1. HUMAN IMMUNOGLOBULIN (GENERIC) [Suspect]
     Active Substance: HUMAN IMMUNOGLOBULIN G
     Indication: MILLER FISHER SYNDROME
     Dosage: 0.4 GRAM PER KILOGRAM, QD, 2 CYCLES
     Route: 042
  2. RITUXIMAB. [Suspect]
     Active Substance: RITUXIMAB
     Indication: MILLER FISHER SYNDROME
     Dosage: 1000 MILLIGRAM EVERY TWO WEEKS
     Route: 065
  3. HUMAN IMMUNOGLOBULIN (GENERIC) [Suspect]
     Active Substance: HUMAN IMMUNOGLOBULIN G
     Dosage: 1 GRAM PER KILOGRAM IN 2 DAYS, 1 CYCLE
     Route: 042
  4. PREDNISONE. [Suspect]
     Active Substance: PREDNISONE
     Indication: MILLER FISHER SYNDROME
     Dosage: 1 MILLIGRAM/KILOGRAM, QD
     Route: 065
  5. INFLIXIMAB RECOMBINANT [Suspect]
     Active Substance: INFLIXIMAB
     Indication: MILLER FISHER SYNDROME
     Dosage: 5 MILLIGRAM/KILOGRAM, SINGLE
     Route: 065

REACTIONS (1)
  - Drug ineffective [Fatal]
